FAERS Safety Report 9358664 (Version 1)
Quarter: 2013Q2

REPORT INFORMATION
  Report Type: Spontaneous
  Country: JP (occurrence: JP)
  Receive Date: 20130620
  Receipt Date: 20130620
  Transmission Date: 20140414
  Serious: Yes (Hospitalization)
  Sender: FDA-Public Use
  Company Number: JP-GLAXOSMITHKLINE-B0890801A

PATIENT
  Age: 91 Year
  Sex: Female

DRUGS (6)
  1. VALTREX [Suspect]
     Indication: HERPES ZOSTER
     Dosage: 1000MG THREE TIMES PER DAY
     Route: 048
     Dates: start: 20130424, end: 201304
  2. NEUROTROPIN [Concomitant]
     Dosage: 4IUAX TWICE PER DAY
     Route: 048
  3. BAYASPIRIN [Concomitant]
     Dosage: 100MG PER DAY
     Route: 048
  4. CARDENALIN [Concomitant]
     Dosage: 1MG TWICE PER DAY
     Route: 048
  5. NIFEDIPINE [Concomitant]
     Dosage: 20MG PER DAY
     Route: 048
  6. DIOVAN [Concomitant]
     Dosage: 80MG PER DAY
     Route: 048

REACTIONS (12)
  - Altered state of consciousness [Recovered/Resolved]
  - Delirium [Unknown]
  - Bacteraemia [Unknown]
  - Urinary tract infection [Unknown]
  - Toxic encephalopathy [Unknown]
  - Aspiration [Unknown]
  - Gait disturbance [Unknown]
  - Speech disorder [Unknown]
  - Pyrexia [Unknown]
  - Escherichia test positive [Unknown]
  - Myoclonus [Unknown]
  - Chills [Unknown]
